FAERS Safety Report 24308644 (Version 1)
Quarter: 2024Q3

REPORT INFORMATION
  Report Type: Report from Study
  Country: FR (occurrence: FR)
  Receive Date: 20240911
  Receipt Date: 20240911
  Transmission Date: 20241016
  Serious: Yes (Hospitalization, Other)
  Sender: AMGEN
  Company Number: FR-ABBVIE-5889362

PATIENT
  Age: 29 Year
  Sex: Female
  Weight: 52 kg

DRUGS (6)
  1. ADALIMUMAB [Suspect]
     Active Substance: ADALIMUMAB
     Indication: Crohn^s disease
     Dosage: UNK
     Route: 065
     Dates: start: 2011
  2. SKYRIZI [Suspect]
     Active Substance: RISANKIZUMAB-RZAA
     Indication: Crohn^s disease
     Dosage: UNK
     Route: 058
     Dates: start: 2021, end: 2022
  3. CERTOLIZUMAB PEGOL [Concomitant]
     Active Substance: CERTOLIZUMAB PEGOL
     Indication: Crohn^s disease
     Dosage: LAST ADMINISTRATION DATE: 2021
     Dates: start: 202109
  4. PREDNISOLONE [Concomitant]
     Active Substance: PREDNISOLONE
     Indication: Crohn^s disease
     Dosage: 40 MILLIGRAM, QD
  5. INFLIXIMAB [Concomitant]
     Active Substance: INFLIXIMAB
     Indication: Crohn^s disease
     Dosage: UNK
     Dates: start: 2015
  6. VEDOLIZUMAB [Concomitant]
     Active Substance: VEDOLIZUMAB
     Indication: Crohn^s disease
     Dosage: UNK
     Dates: start: 2020

REACTIONS (19)
  - Abdominal abscess [Unknown]
  - Enterocolitis [Unknown]
  - Vomiting [Unknown]
  - Intestinal obstruction [Unknown]
  - Ileal ulcer [Not Recovered/Not Resolved]
  - Crohn^s disease [Unknown]
  - Crohn^s disease [Recovered/Resolved]
  - Anastomotic ulcer [Not Recovered/Not Resolved]
  - Large intestinal stenosis [Unknown]
  - Abdominal pain [Unknown]
  - Colitis [Unknown]
  - Inflammation [Unknown]
  - Maternal exposure during pregnancy [Unknown]
  - C-reactive protein increased [Unknown]
  - Drug intolerance [Unknown]
  - Drug ineffective [Unknown]
  - Diarrhoea [Unknown]
  - Stenosis [Unknown]
  - Inflammation [Not Recovered/Not Resolved]

NARRATIVE: CASE EVENT DATE: 20140101
